FAERS Safety Report 15237221 (Version 1)
Quarter: 2018Q3

REPORT INFORMATION
  Report Type: Spontaneous
  Country: US (occurrence: US)
  Receive Date: 20180803
  Receipt Date: 20180803
  Transmission Date: 20181010
  Serious: No
  Sender: FDA-Public Use
  Company Number: US-SHIRE-US201828585

PATIENT
  Sex: Female

DRUGS (1)
  1. VYVANSE [Suspect]
     Active Substance: LISDEXAMFETAMINE DIMESYLATE
     Indication: PRODUCT USED FOR UNKNOWN INDICATION
     Dosage: 40 MG, UNK
     Route: 065

REACTIONS (4)
  - Drug ineffective [Recovered/Resolved]
  - Product storage error [Recovered/Resolved]
  - Dizziness [Recovered/Resolved]
  - Somnolence [Recovered/Resolved]

NARRATIVE: CASE EVENT DATE: 201807
